FAERS Safety Report 10603000 (Version 1)
Quarter: 2014Q4

REPORT INFORMATION
  Report Type: Spontaneous
  Country: DE (occurrence: DE)
  Receive Date: 20141124
  Receipt Date: 20141124
  Transmission Date: 20150529
  Serious: Yes (Death)
  Sender: FDA-Public Use
  Company Number: DE-ABBVIE-14P-062-1311668-00

PATIENT
  Age: 75 Year
  Sex: Female

DRUGS (2)
  1. DUODOPA [Suspect]
     Active Substance: CARBIDOPA\LEVODOPA
     Indication: PARKINSON^S DISEASE
     Route: 050
     Dates: start: 20130429, end: 20130508
  2. DUODOPA [Suspect]
     Active Substance: CARBIDOPA\LEVODOPA
     Dosage: MD 6.0ML, CRD 3.4ML/H, ED 1.3ML
     Route: 050
     Dates: start: 20130508

REACTIONS (1)
  - Cardiovascular insufficiency [Fatal]

NARRATIVE: CASE EVENT DATE: 20141121
